FAERS Safety Report 8462000-4 (Version None)
Quarter: 2012Q2

REPORT INFORMATION
  Report Type: 
  Country: None (occurrence: None)
  Receive Date: 20120625
  Receipt Date: 20120615
  Transmission Date: 20120825
  Serious: Yes (Hospitalization, Other)
  Sender: FDA-Public Use
  Company Number: US-JNJFOC-20120609093

PATIENT
  Sex: Female

DRUGS (2)
  1. REMICADE [Suspect]
     Route: 042
  2. REMICADE [Suspect]
     Indication: PRODUCT USED FOR UNKNOWN INDICATION
     Dosage: 2ND INFUSION
     Route: 042
     Dates: start: 20120615, end: 20120601

REACTIONS (6)
  - FLUSHING [None]
  - DRUG INEFFECTIVE [None]
  - INFUSION RELATED REACTION [None]
  - LIP SWELLING [None]
  - HEART RATE INCREASED [None]
  - URTICARIA [None]
